FAERS Safety Report 10519386 (Version 5)
Quarter: 2015Q2

REPORT INFORMATION
  Report Type: Spontaneous
  Country: US (occurrence: US)
  Receive Date: 20141015
  Receipt Date: 20150506
  Transmission Date: 20150821
  Serious: Yes (Hospitalization)
  Sender: FDA-Public Use
  Company Number: US-ALKERMES INC.-ALK-2014-003539

PATIENT

DRUGS (1)
  1. VIVITROL [Suspect]
     Active Substance: NALTREXONE
     Indication: ALCOHOLISM
     Dosage: 380 MG, QMO
     Route: 030
     Dates: start: 201404

REACTIONS (11)
  - Procedural pain [Recovered/Resolved]
  - Renal pain [Recovered/Resolved]
  - Nephrolithiasis [Recovered/Resolved]
  - Drug ineffective [Not Recovered/Not Resolved]
  - Arrhythmia [Recovered/Resolved]
  - Drug dose omission [Recovered/Resolved]
  - Back pain [Not Recovered/Not Resolved]
  - Flank pain [Recovered/Resolved]
  - Alcohol use [Not Recovered/Not Resolved]
  - Arthralgia [Not Recovered/Not Resolved]
  - Alcoholism [Not Recovered/Not Resolved]

NARRATIVE: CASE EVENT DATE: 2014
